FAERS Safety Report 20231977 (Version 1)
Quarter: 2021Q4

REPORT INFORMATION
  Report Type: Spontaneous
  Country: US (occurrence: None)
  Receive Date: 20211227
  Receipt Date: 20211227
  Transmission Date: 20220304
  Serious: Yes (Other)
  Sender: FDA-Public Use
  Company Number: US-ACS-002152

PATIENT
  Age: 80 Year
  Sex: Male

DRUGS (1)
  1. CEFUROXIME [Suspect]
     Active Substance: CEFUROXIME
     Dosage: 1.0 MG/0.1 ML OF INTRACAMERAL CEFUROXIME
     Route: 031

REACTIONS (3)
  - Macular oedema [Recovered/Resolved with Sequelae]
  - Macular detachment [Recovered/Resolved with Sequelae]
  - Off label use [Recovered/Resolved with Sequelae]
